FAERS Safety Report 8502877-7 (Version None)
Quarter: 2012Q3

REPORT INFORMATION
  Report Type: 
  Country: None (occurrence: None)
  Receive Date: 20120711
  Receipt Date: 20120627
  Transmission Date: 20120928
  Serious: Yes (Hospitalization)
  Sender: FDA-Public Use
  Company Number: GB-MYLANLABS-2012S1013211

PATIENT
  Age: 30 Year
  Sex: Male

DRUGS (6)
  1. MIRTAZAPINE [Suspect]
     Indication: DEPRESSED MOOD
     Route: 048
     Dates: start: 20120416, end: 20120502
  2. FLUCLOXACILLIN [Concomitant]
     Indication: SKIN INFECTION
     Route: 048
     Dates: start: 20120418, end: 20120424
  3. LORAZEPAM [Concomitant]
     Indication: ANXIETY
     Route: 048
     Dates: start: 20120425
  4. MIRTAZAPINE [Suspect]
     Indication: INTENTIONAL SELF-INJURY
     Route: 048
     Dates: start: 20120416, end: 20120502
  5. ACETAMINOPHEN [Concomitant]
     Indication: PAIN
     Route: 048
     Dates: start: 20120415
  6. MIRTAZAPINE [Suspect]
     Indication: ANXIETY
     Route: 048
     Dates: start: 20120416, end: 20120502

REACTIONS (2)
  - RESTLESS LEGS SYNDROME [None]
  - PARAESTHESIA [None]
